FAERS Safety Report 7939806-0 (Version None)
Quarter: 2011Q4

REPORT INFORMATION
  Report Type: 
  Country: None (occurrence: None)
  Receive Date: 20111125
  Receipt Date: 20111122
  Transmission Date: 20120403
  Serious: Yes (Death, Other)
  Sender: FDA-Public Use
  Company Number: PHHY2011DE66013

PATIENT
  Sex: Female
  Weight: 64 kg

DRUGS (1)
  1. AFINITOR [Suspect]
     Indication: METASTATIC RENAL CELL CARCINOMA
     Dosage: 10 MG DAILY
     Route: 048
     Dates: start: 20101118, end: 20110204

REACTIONS (3)
  - PNEUMOTHORAX [None]
  - NEOPLASM MALIGNANT [None]
  - NEOPLASM PROGRESSION [None]
